FAERS Safety Report 5556926-9 (Version None)
Quarter: 2007Q4

REPORT INFORMATION
  Report Type: 
  Country: None (occurrence: None)
  Receive Date: 20071211
  Receipt Date: 20071130
  Transmission Date: 20080405
  Serious: Yes (Other)
  Sender: FDA-Public Use
  Company Number: GXKR2007IN09897

PATIENT
  Age: 9 Year
  Sex: Male
  Weight: 34 kg

DRUGS (2)
  1. AMOXICILLIN, CLAVULANIC ACID, LACTOBACILLUS SPOROGENES (NGX)(AMOXICILL [Suspect]
     Indication: TONSILLITIS
     Dosage: 4 ML, BID; ORAL
     Route: 048
  2. ACETAMINOPHEN [Concomitant]

REACTIONS (6)
  - ABDOMINAL PAIN [None]
  - HAEMATEMESIS [None]
  - INSOMNIA [None]
  - IRRITABILITY [None]
  - NAUSEA [None]
  - VOMITING [None]
